FAERS Safety Report 9826859 (Version 1)
Quarter: 2013Q4

REPORT INFORMATION
  Report Type: Spontaneous
  Country: US (occurrence: None)
  Receive Date: 20131223
  Receipt Date: 20131223
  Transmission Date: 20140711
  Serious: Yes (Other)
  Sender: FDA-Public Use
  Company Number: 221421LEO

PATIENT
  Sex: Female

DRUGS (1)
  1. PICATO [Suspect]
     Dates: start: 20130423, end: 20130424

REACTIONS (3)
  - Application site pruritus [None]
  - Application site warmth [None]
  - Application site dryness [None]
